FAERS Safety Report 24903968 (Version 2)
Quarter: 2025Q1

REPORT INFORMATION
  Report Type: Report from Study
  Country: IL (occurrence: IL)
  Receive Date: 20250130
  Receipt Date: 20250201
  Transmission Date: 20250409
  Serious: Yes (Hospitalization)
  Sender: ROCHE
  Company Number: IL-ROCHE-10000191953

PATIENT

DRUGS (1)
  1. RITUXIMAB [Suspect]
     Active Substance: RITUXIMAB
     Indication: Nephrotic syndrome
     Route: 065

REACTIONS (2)
  - Cholecystitis [Unknown]
  - COVID-19 [Unknown]
